FAERS Safety Report 4866172-X (Version None)
Quarter: 2005Q4

REPORT INFORMATION
  Report Type: 
  Country: None (occurrence: None)
  Receive Date: 20051221
  Receipt Date: 20051206
  Transmission Date: 20060501
  Serious: Yes (Other)
  Sender: FDA-Public Use
  Company Number: S05-USA-03830-01

PATIENT
  Age: 32 Year
  Sex: Male

DRUGS (5)
  1. LEXAPRO [Suspect]
     Indication: DEPRESSION
     Dosage: 10 MG QD PO
     Route: 048
     Dates: start: 20040821, end: 20040828
  2. ADDERALL (AMPHETAMINES) [Concomitant]
  3. DEPAKOTE [Concomitant]
  4. LAMICTAL [Concomitant]
  5. SONATA [Concomitant]

REACTIONS (4)
  - AGGRESSION [None]
  - DEPRESSION [None]
  - INSOMNIA [None]
  - MANIA [None]
